FAERS Safety Report 5194385-9 (Version None)
Quarter: 2006Q4

REPORT INFORMATION
  Report Type: 
  Country: None (occurrence: None)
  Receive Date: 20061228
  Receipt Date: 20061218
  Transmission Date: 20070319
  Serious: Yes (Other)
  Sender: FDA-Public Use
  Company Number: US-PFIZER INC-2006154989

PATIENT
  Age: 50 Year
  Sex: Female
  Weight: 53.1 kg

DRUGS (2)
  1. CHANTIX [Suspect]
     Indication: EX-SMOKER
     Dates: start: 20061215, end: 20061217
  2. EXTRA STRENGTH TYLENOL [Suspect]
     Indication: HEADACHE

REACTIONS (7)
  - ABNORMAL DREAMS [None]
  - ACCIDENTAL EXPOSURE [None]
  - DRUG INEFFECTIVE [None]
  - HEADACHE [None]
  - INSOMNIA [None]
  - MEMORY IMPAIRMENT [None]
  - SMOKER [None]
